FAERS Safety Report 5490616-6 (Version None)
Quarter: 2007Q4

REPORT INFORMATION
  Report Type: 
  Country: None (occurrence: None)
  Receive Date: 20071019
  Receipt Date: 20070919
  Transmission Date: 20080405
  Serious: Yes (Hospitalization)
  Sender: FDA-Public Use
  Company Number: PHBS2007ES14592

PATIENT
  Age: 24 Year
  Sex: Female

DRUGS (2)
  1. CARBAMAZEPINE [Suspect]
     Indication: PARTIAL SEIZURES
     Dosage: 800 MG/DAY
     Route: 065
  2. CARBAMAZEPINE [Suspect]
     Dosage: 1200 MG/DAY
     Route: 065

REACTIONS (6)
  - AMNESIA [None]
  - APRAXIA [None]
  - CENTRAL NERVOUS SYSTEM LESION [None]
  - DYSARTHRIA [None]
  - MOTOR DYSFUNCTION [None]
  - PARTIAL SEIZURES [None]
